FAERS Safety Report 23823900 (Version 1)
Quarter: 2024Q2

REPORT INFORMATION
  Report Type: Spontaneous
  Country: US (occurrence: US)
  Receive Date: 20240507
  Receipt Date: 20240507
  Transmission Date: 20240716
  Serious: No
  Sender: FDA-Public Use
  Company Number: US-UCBSA-2023059192

PATIENT
  Sex: Female
  Weight: 48.073 kg

DRUGS (7)
  1. CIMZIA [Suspect]
     Active Substance: CERTOLIZUMAB PEGOL
     Indication: Crohn^s disease
     Dosage: 400 MILLIGRAM, EV 4 WEEKS (INJECT 2 ML UNDER THE SKIN)
     Route: 058
     Dates: start: 2009
  2. FLUTICASONE PROPIONATE [Concomitant]
     Active Substance: FLUTICASONE PROPIONATE
     Indication: Product used for unknown indication
     Dosage: UNK
  3. RETINOL [Concomitant]
     Active Substance: RETINOL
     Indication: Product used for unknown indication
     Dosage: 10000 UNIT
  4. VITAMINS NOS [Concomitant]
     Active Substance: VITAMINS
     Indication: Product used for unknown indication
     Dosage: UNK
  5. TRETINOIN [Concomitant]
     Active Substance: TRETINOIN
     Indication: Product used for unknown indication
     Dosage: UNK
  6. TYLENOL [Concomitant]
     Active Substance: ACETAMINOPHEN
     Indication: Product used for unknown indication
     Dosage: UNK
  7. COVID-19 VACCINE [Concomitant]
     Indication: Product used for unknown indication
     Dosage: UNK

REACTIONS (3)
  - Headache [Unknown]
  - Paraesthesia [Unknown]
  - COVID-19 immunisation [Unknown]
